FAERS Safety Report 9540484 (Version 1)
Quarter: 2013Q3

REPORT INFORMATION
  Report Type: Report from Study
  Country: FR (occurrence: FR)
  Receive Date: 20130920
  Receipt Date: 20130920
  Transmission Date: 20140515
  Serious: Yes (Hospitalization)
  Sender: FDA-Public Use
  Company Number: FR-ABBVIE-13P-056-1147821-00

PATIENT
  Age: 50 Year
  Sex: Male
  Weight: 63 kg

DRUGS (4)
  1. RITONAVIR [Suspect]
     Indication: HIV INFECTION
     Route: 048
     Dates: start: 20101016
  2. ATAZANAVIR [Concomitant]
     Indication: HIV INFECTION
     Route: 048
     Dates: start: 20101016
  3. TRUVADA [Concomitant]
     Indication: HIV INFECTION
     Dosage: 200/245MG
     Route: 048
     Dates: start: 20101016
  4. AMOROLFINE [Concomitant]
     Indication: PRODUCT USED FOR UNKNOWN INDICATION
     Dates: start: 20111110

REACTIONS (2)
  - Bradycardia [Recovered/Resolved]
  - Gastroenteritis [Recovered/Resolved]
